FAERS Safety Report 13244968 (Version 1)
Quarter: 2017Q1

REPORT INFORMATION
  Report Type: Spontaneous
  Country: FR (occurrence: FR)
  Receive Date: 20170217
  Receipt Date: 20170217
  Transmission Date: 20170428
  Serious: Yes (Hospitalization)
  Sender: FDA-Public Use
  Company Number: FR-ASTRAZENECA-2017SE16347

PATIENT
  Age: 24408 Day
  Sex: Male

DRUGS (7)
  1. PULMICORT RESPULES [Suspect]
     Active Substance: BUDESONIDE
     Indication: CHRONIC OBSTRUCTIVE PULMONARY DISEASE
     Route: 055
     Dates: start: 20170120
  2. DIAMOX SEQUELS [Suspect]
     Active Substance: ACETAZOLAMIDE
     Indication: CATARACT OPERATION
     Route: 047
     Dates: start: 20170112, end: 20170127
  3. BRICANYL [Concomitant]
     Active Substance: TERBUTALINE SULFATE
     Indication: CHRONIC OBSTRUCTIVE PULMONARY DISEASE
     Dates: start: 20170131
  4. PULMICORT RESPULES [Suspect]
     Active Substance: BUDESONIDE
     Indication: CHRONIC OBSTRUCTIVE PULMONARY DISEASE
     Dosage: TOOK PULMICORT AT 10 PM
     Route: 055
     Dates: start: 20170130
  5. DIAMOX SEQUELS [Suspect]
     Active Substance: ACETAZOLAMIDE
     Indication: CATARACT OPERATION
     Dosage: IN THE EVENING, THE PATIENT TOOK DIAMOX AT 7.30 PM
     Route: 047
     Dates: start: 20170130
  6. PULMICORT RESPULES [Suspect]
     Active Substance: BUDESONIDE
     Indication: CHRONIC OBSTRUCTIVE PULMONARY DISEASE
     Dosage: TOOK PULMICORT AROUND 12 AM
     Route: 055
     Dates: start: 20170131
  7. ATROVENT NEBULIZATION [Concomitant]
     Indication: CHRONIC OBSTRUCTIVE PULMONARY DISEASE
     Dates: start: 20170131

REACTIONS (7)
  - Asthenia [Unknown]
  - Chronic obstructive pulmonary disease [Unknown]
  - Paraesthesia [Unknown]
  - Bronchospasm [Recovering/Resolving]
  - Dysgeusia [Unknown]
  - Gastrointestinal disorder [Unknown]
  - Oxygen saturation decreased [Unknown]

NARRATIVE: CASE EVENT DATE: 20170127
